FAERS Safety Report 5318741-0 (Version None)
Quarter: 2007Q2

REPORT INFORMATION
  Report Type: 
  Country: None (occurrence: None)
  Receive Date: 20070503
  Receipt Date: 20070503
  Transmission Date: 20071010
  Serious: No
  Sender: FDA-Public Use
  Company Number: None

PATIENT

DRUGS (1)
  1. LIPITOR [Suspect]
     Indication: DIABETES MELLITUS
     Dosage: 20 MG DAILY PO
     Route: 048

REACTIONS (1)
  - MINI MENTAL STATUS EXAMINATION ABNORMAL [None]
